FAERS Safety Report 7249100-1 (Version None)
Quarter: 2011Q1

REPORT INFORMATION
  Report Type: 
  Country: None (occurrence: None)
  Receive Date: 20110128
  Receipt Date: 20101122
  Transmission Date: 20110831
  Serious: Yes (Hospitalization)
  Sender: FDA-Public Use
  Company Number: US-BAYER-201032833NA

PATIENT
  Sex: Male

DRUGS (3)
  1. NEXAVAR [Suspect]
     Indication: HEPATIC NEOPLASM MALIGNANT
     Dosage: 200 MG, BID
     Route: 048
     Dates: start: 20100801, end: 20100101
  2. NEXAVAR [Suspect]
     Dosage: 600 MG, QD
     Route: 048
     Dates: start: 20101101
  3. NEXAVAR [Suspect]
     Dosage: 400 MG, BID
     Route: 048
     Dates: start: 20100101, end: 20101101

REACTIONS (7)
  - FATIGUE [None]
  - BLOOD SODIUM DECREASED [None]
  - EATING DISORDER [None]
  - ASTHENIA [None]
  - HEART RATE IRREGULAR [None]
  - AMMONIA INCREASED [None]
  - HOSPITALISATION [None]
